FAERS Safety Report 12141925 (Version 2)
Quarter: 2016Q1

REPORT INFORMATION
  Report Type: Spontaneous
  Country: JP (occurrence: JP)
  Receive Date: 20160303
  Receipt Date: 20160325
  Transmission Date: 20160526
  Serious: No
  Sender: FDA-Public Use
  Company Number: JP-PFIZER INC-2016131674

PATIENT
  Age: 75 Year
  Sex: Female

DRUGS (1)
  1. XALATAN [Suspect]
     Active Substance: LATANOPROST
     Dosage: UNK, 1X/DAY
     Route: 047
     Dates: start: 20160226, end: 20160226

REACTIONS (3)
  - Dyskinesia [Recovered/Resolved]
  - Muscular weakness [Recovered/Resolved]
  - Muscle contractions involuntary [Recovered/Resolved]

NARRATIVE: CASE EVENT DATE: 20160227
